FAERS Safety Report 5279424-9 (Version None)
Quarter: 2007Q1

REPORT INFORMATION
  Report Type: 
  Country: None (occurrence: None)
  Receive Date: 20070328
  Receipt Date: 20070314
  Transmission Date: 20070707
  Serious: Yes (Other)
  Sender: FDA-Public Use
  Company Number: US-SHR-US-2006-022472

PATIENT
  Age: 50 Year
  Sex: Male
  Weight: 98.2 kg

DRUGS (23)
  1. GM-CSF (9874) [Suspect]
     Indication: CROHN'S DISEASE
     Dosage: 4 A?G/KG, 1X/DAY
     Route: 058
     Dates: start: 20050428, end: 20060717
  2. SIMETHICONE [Concomitant]
     Indication: FLATULENCE
     Dates: start: 20050201
  3. LIPITOR [Concomitant]
     Indication: PROPHYLAXIS
     Dates: start: 20050920
  4. BENADRYL ^WARNER-LAMBERT^               /USA/ [Concomitant]
     Indication: PROPHYLAXIS
     Dates: start: 20051006
  5. DONNATAL [Concomitant]
     Indication: CROHN'S DISEASE
     Dates: start: 20050925
  6. IMODIUM [Concomitant]
     Indication: CROHN'S DISEASE
     Dates: start: 20051002
  7. CODEINE [Concomitant]
     Indication: CROHN'S DISEASE
     Dosage: 30 MG 1-2 TABS, EVERY 6H, PRN
     Route: 048
     Dates: start: 20051201
  8. CODEINE [Concomitant]
     Dosage: 30 MG, 1-2 TABLETS, EVERY 8H
     Route: 048
     Dates: start: 20060921
  9. ESOMEPRAZOLE MAGNESIUM [Concomitant]
     Indication: DYSPEPSIA
     Dates: start: 20030101
  10. FINASTERIDE [Concomitant]
     Indication: MALE PATTERN BALDNESS
     Dates: start: 20030101
  11. MULTIVITAMIN ^LAPPE^ [Concomitant]
     Indication: PROPHYLAXIS
     Dosage: 1 TAB(S), 1X/DAY
     Route: 048
     Dates: start: 20060929
  12. TYLENOL W/ CODEINE NO. 3 [Concomitant]
     Indication: INSOMNIA
     Dates: start: 20050201
  13. VICODIN [Concomitant]
     Indication: CROHN'S DISEASE
     Dates: start: 20010601
  14. ALPRAZOLAM [Concomitant]
     Indication: ANXIETY
     Dates: start: 20050428
  15. OMNICEF [Concomitant]
     Indication: TONSILLITIS
     Dates: start: 20051203, end: 20051212
  16. VSL3 PROBIOTIC [Concomitant]
     Indication: INFLAMMATORY BOWEL DISEASE
     Dates: start: 20051114, end: 20051116
  17. RESTORIL [Concomitant]
     Dosage: 30 MG, 1X/DAY, PRN
     Route: 048
     Dates: start: 20060921
  18. FOLIC ACID [Concomitant]
     Dosage: UNK, 1X/DAY
     Route: 048
     Dates: start: 20060921
  19. AMBIEN [Concomitant]
     Dosage: 10 MG DAILY
     Route: 048
     Dates: start: 20060921
  20. ZYRTEC [Concomitant]
     Dosage: 10 MG, 1X/DAY,PRN
     Route: 048
     Dates: start: 20060921
  21. CELEBREX [Concomitant]
     Dosage: 200 MG, 1-2 CAPSULES,AS REQ'D
     Route: 048
     Dates: start: 20060921
  22. NEXIUM [Concomitant]
     Dosage: 40 MG, 1X/DAY
     Route: 048
     Dates: start: 20060921
  23. PROPECIA [Concomitant]
     Dosage: 1 MG, 1X/DAY
     Route: 048
     Dates: start: 20060921

REACTIONS (1)
  - WARM TYPE HAEMOLYTIC ANAEMIA [None]
